FAERS Safety Report 18239344 (Version 1)
Quarter: 2020Q3

REPORT INFORMATION
  Report Type: Spontaneous
  Country: US (occurrence: US)
  Receive Date: 20200907
  Receipt Date: 20200907
  Transmission Date: 20201103
  Serious: No
  Sender: FDA-Public Use
  Company Number: NVSC2020US242575

PATIENT
  Sex: Female

DRUGS (1)
  1. PIQRAY [Suspect]
     Active Substance: ALPELISIB
     Indication: PRODUCT USED FOR UNKNOWN INDICATION
     Dosage: (150MG *2 ), QD
     Route: 065

REACTIONS (5)
  - Anxiety [Unknown]
  - Headache [Not Recovered/Not Resolved]
  - Mental disorder [Unknown]
  - Depression [Unknown]
  - Nausea [Unknown]
